FAERS Safety Report 8608033 (Version 2)
Quarter: 2013Q2

REPORT INFORMATION
  Report Type: Spontaneous
  Country: US (occurrence: US)
  Receive Date: 20120611
  Receipt Date: 20130620
  Transmission Date: 20140414
  Serious: No
  Sender: FDA-Public Use
  Company Number: US-ASTRAZENECA-2012SE34958

PATIENT
  Age: 41 Year
  Sex: Female

DRUGS (12)
  1. NEXIUM [Suspect]
     Indication: DYSPEPSIA
     Dosage: ONCE A DAY
     Route: 048
  2. NEXIUM [Suspect]
     Indication: DYSPEPSIA
     Route: 048
     Dates: start: 20071008
  3. APAP [Concomitant]
  4. METFORMIN [Concomitant]
  5. D-CALCIUM [Concomitant]
  6. LISINOPRIL [Concomitant]
  7. LISINOPRIL [Concomitant]
     Route: 048
     Dates: start: 20071207
  8. IBUPROFEN [Concomitant]
     Route: 048
     Dates: start: 20071008
  9. ACCOLATE [Concomitant]
     Route: 048
     Dates: start: 20071008
  10. MECLIZINE [Concomitant]
     Route: 048
     Dates: start: 20071008
  11. TRICOR [Concomitant]
     Route: 048
     Dates: start: 20071008
  12. QUINAPRIL [Concomitant]
     Route: 048
     Dates: start: 20071016

REACTIONS (7)
  - Osteoporosis [Unknown]
  - Arthritis [Unknown]
  - Diabetes mellitus [Unknown]
  - Limb discomfort [Unknown]
  - Multiple fractures [Unknown]
  - Polyuria [Unknown]
  - Depression [Unknown]
